FAERS Safety Report 20069904 (Version 2)
Quarter: 2021Q4

REPORT INFORMATION
  Report Type: Spontaneous
  Country: PT (occurrence: PT)
  Receive Date: 20211115
  Receipt Date: 20211123
  Transmission Date: 20220303
  Serious: Yes (Death, Hospitalization, Other)
  Sender: FDA-Public Use
  Company Number: PT-MYLANLABS-2021M1079341

PATIENT
  Age: 77 Year
  Sex: Female

DRUGS (2)
  1. METHYLPREDNISOLONE [Suspect]
     Active Substance: METHYLPREDNISOLONE
     Dosage: UNK, CYCLE
  2. INFLUENZA VIRUS VACCINE [Suspect]
     Active Substance: INFLUENZA VIRUS VACCINE
     Indication: Influenza immunisation

REACTIONS (12)
  - Bradycardia [Fatal]
  - Hypotension [Fatal]
  - Autonomic nervous system imbalance [Fatal]
  - Neuromyelitis optica spectrum disorder [Unknown]
  - Quadriparesis [Unknown]
  - Cough [Unknown]
  - Hippus [Unknown]
  - Hypotonia [Unknown]
  - Odynophagia [Unknown]
  - Vomiting [Unknown]
  - Motor dysfunction [Unknown]
  - Pyrexia [Unknown]
